FAERS Safety Report 19472120 (Version 1)
Quarter: 2021Q2

REPORT INFORMATION
  Report Type: Report from Study
  Country: JP (occurrence: JP)
  Receive Date: 20210629
  Receipt Date: 20210629
  Transmission Date: 20210717
  Serious: Yes (Other)
  Sender: FDA-Public Use
  Company Number: JP-ASTRAZENECA-2019SF90207

PATIENT
  Sex: Female

DRUGS (1)
  1. FORXIGA [Suspect]
     Active Substance: DAPAGLIFLOZIN
     Indication: TYPE 2 DIABETES MELLITUS
     Route: 048

REACTIONS (17)
  - Gastrooesophageal reflux disease [Recovering/Resolving]
  - Blood pressure inadequately controlled [Recovered/Resolved]
  - Neuropathy peripheral [Recovered/Resolved]
  - Blepharitis [Not Recovered/Not Resolved]
  - Vomiting [Recovering/Resolving]
  - Pneumonia chlamydial [Recovered/Resolved]
  - Influenza [Recovered/Resolved]
  - Blood cholesterol abnormal [Recovered/Resolved]
  - Rhabdomyolysis [Recovered/Resolved]
  - Back pain [Not Recovered/Not Resolved]
  - Rhinitis allergic [Recovered/Resolved]
  - Blood triglycerides abnormal [Recovered/Resolved]
  - Insomnia [Not Recovered/Not Resolved]
  - Carcinoembryonic antigen increased [Not Recovered/Not Resolved]
  - Asthma [Recovered/Resolved]
  - Motion sickness [Not Recovered/Not Resolved]
  - Bronchitis chronic [Recovered/Resolved]

NARRATIVE: CASE EVENT DATE: 20150327
